FAERS Safety Report 16219729 (Version 2)
Quarter: 2019Q2

REPORT INFORMATION
  Report Type: Spontaneous
  Country: IT (occurrence: IT)
  Receive Date: 20190420
  Receipt Date: 20190425
  Transmission Date: 20190711
  Serious: Yes (Hospitalization, Other)
  Sender: FDA-Public Use
  Company Number: IT-AUROBINDO-AUR-APL-2019-021024

PATIENT

DRUGS (3)
  1. GEMZAR [Suspect]
     Active Substance: GEMCITABINE HYDROCHLORIDE
     Indication: OVARIAN CANCER
     Dosage: 1600 MILLIGRAM, CYCLICAL
     Route: 042
     Dates: start: 20190102, end: 20190319
  2. CARBOPLATIN. [Suspect]
     Active Substance: CARBOPLATIN
     Indication: OVARIAN CANCER
     Dosage: 450 MILLIGRAM, CYCLICAL
     Route: 042
     Dates: start: 20190102, end: 20190319
  3. AVASTIN [Suspect]
     Active Substance: BEVACIZUMAB
     Indication: OVARIAN CANCER
     Dosage: 990 MILLIGRAM, CYCLICAL
     Route: 042
     Dates: start: 20190102, end: 20190319

REACTIONS (1)
  - Gastric perforation [Recovered/Resolved]

NARRATIVE: CASE EVENT DATE: 20190325
